FAERS Safety Report 4396715-4 (Version None)
Quarter: 2004Q3

REPORT INFORMATION
  Report Type: 
  Country: None (occurrence: None)
  Receive Date: 20040713
  Receipt Date: 20040713
  Transmission Date: 20050211
  Serious: Yes (Hospitalization)
  Sender: FDA-Public Use
  Company Number: None

PATIENT
  Age: 86 Year
  Sex: Male
  Weight: 63.4 kg

DRUGS (1)
  1. ATENOLOL [Suspect]
     Indication: ANGINA PECTORIS
     Dosage: 50 MG, 50 MG QD ORAL
     Route: 048
     Dates: start: 20040422, end: 20040505

REACTIONS (1)
  - BRADYCARDIA [None]
